FAERS Safety Report 12716812 (Version 1)
Quarter: 2016Q3

REPORT INFORMATION
  Report Type: Spontaneous
  Country: US (occurrence: US)
  Receive Date: 20160906
  Receipt Date: 20160906
  Transmission Date: 20161109
  Serious: No
  Sender: FDA-Public Use
  Company Number: US-ELI_LILLY_AND_COMPANY-US201608011133

PATIENT
  Sex: Male
  Weight: 106 kg

DRUGS (6)
  1. MORPHINE [Concomitant]
     Active Substance: MORPHINE
  2. TIZANIDINE. [Concomitant]
     Active Substance: TIZANIDINE
  3. CYMBALTA [Suspect]
     Active Substance: DULOXETINE HYDROCHLORIDE
     Indication: PRODUCT USED FOR UNKNOWN INDICATION
     Dosage: 60 MG, UNK
     Route: 048
  4. ZOLPIDEM [Concomitant]
     Active Substance: ZOLPIDEM\ZOLPIDEM TARTRATE
  5. HYDROCODONE BITARTRATE AND ACETAMINOPHEN [Concomitant]
     Active Substance: ACETAMINOPHEN\HYDROCODONE BITARTRATE
  6. LYRICA [Concomitant]
     Active Substance: PREGABALIN
     Dosage: UNK MG, QD

REACTIONS (3)
  - Pain [Unknown]
  - Insomnia [Unknown]
  - Paraesthesia [Unknown]
